FAERS Safety Report 9784638 (Version 2)
Quarter: 2014Q1

REPORT INFORMATION
  Report Type: Spontaneous
  Country: US (occurrence: US)
  Receive Date: 20131226
  Receipt Date: 20140102
  Transmission Date: 20141002
  Serious: Yes (Other)
  Sender: FDA-Public Use
  Company Number: US-PFIZER INC-2013366493

PATIENT
  Age: 23 Year
  Sex: Female
  Weight: 51.7 kg

DRUGS (1)
  1. DEPO-PROVERA [Suspect]
     Dosage: UNK
     Dates: start: 201310, end: 20131216

REACTIONS (16)
  - Panic attack [Unknown]
  - Depression [Unknown]
  - Anxiety [Unknown]
  - Activities of daily living impaired [Unknown]
  - Fear of death [Unknown]
  - Feeling abnormal [Unknown]
  - Social avoidant behaviour [Unknown]
  - Fear [Unknown]
  - Crying [Unknown]
  - Palpitations [Unknown]
  - Head discomfort [Unknown]
  - Personality change [Unknown]
  - Discomfort [Unknown]
  - Insomnia [Unknown]
  - Breast discharge [Unknown]
  - Malaise [Unknown]
